FAERS Safety Report 7703340-3 (Version None)
Quarter: 2011Q3

REPORT INFORMATION
  Report Type: 
  Country: None (occurrence: None)
  Receive Date: 20110823
  Receipt Date: 20110811
  Transmission Date: 20111222
  Serious: Yes (Hospitalization)
  Sender: FDA-Public Use
  Company Number: GB-ELI_LILLY_AND_COMPANY-GB201107002950

PATIENT
  Sex: Male
  Weight: 61.5 kg

DRUGS (11)
  1. DIAZEPAM [Concomitant]
     Dosage: 20 MG, QD
  2. STELAZINE [Concomitant]
     Dosage: 30 MG, QD
  3. ASPIRIN [Concomitant]
     Dosage: 75 MG, QD
  4. ZYPREXA [Suspect]
     Indication: SCHIZOPHRENIA
     Dosage: 10 MG, QD
     Route: 048
     Dates: start: 19981029, end: 20000114
  5. ZYPREXA [Suspect]
     Dosage: 20 MG, QD
     Route: 048
     Dates: start: 20000114, end: 20011115
  6. ZYPREXA [Suspect]
     Dosage: 30 MG, QD
     Route: 048
     Dates: start: 20011115, end: 20030307
  7. ZYPREXA [Suspect]
     Dosage: 20 MG, QD
     Route: 048
     Dates: start: 20030307, end: 20051205
  8. BENZHEXOL [Concomitant]
     Dosage: 2 MG, UNK
  9. IMIPRAMINE [Concomitant]
     Dosage: 100 MG, QD
  10. CELECOXIB [Concomitant]
     Dosage: 200 MG, PRN
  11. ACETAMINOPHEN AND CODEINE PHOSPHATE [Concomitant]
     Dosage: 1 DF, PRN

REACTIONS (9)
  - OFF LABEL USE [None]
  - URINARY TRACT DISORDER [None]
  - URINARY INCONTINENCE [None]
  - NOCTURIA [None]
  - HEPATIC STEATOSIS [None]
  - TYPE 2 DIABETES MELLITUS [None]
  - PROSTATOMEGALY [None]
  - DIABETES MELLITUS [None]
  - OVERDOSE [None]
